FAERS Safety Report 7767058-3 (Version None)
Quarter: 2011Q3

REPORT INFORMATION
  Report Type: 
  Country: None (occurrence: None)
  Receive Date: 20110922
  Receipt Date: 20110426
  Transmission Date: 20111222
  Serious: No
  Sender: FDA-Public Use
  Company Number: US-ASTRAZENECA-2010SE51209

PATIENT
  Age: 45 Year
  Sex: Female
  Weight: 86.2 kg

DRUGS (7)
  1. SEROQUEL [Suspect]
     Indication: BIPOLAR II DISORDER
     Route: 048
     Dates: start: 20100101, end: 20100101
  2. LAMICTAL [Concomitant]
  3. LIPITOR [Concomitant]
  4. SEROQUEL [Suspect]
     Dosage: 200-300 MG DAILY
     Route: 048
     Dates: start: 20100101
  5. KLONOPIN [Concomitant]
  6. LUVOX CR [Concomitant]
  7. SYNTHROID [Concomitant]

REACTIONS (10)
  - WEIGHT LOSS POOR [None]
  - LABILE BLOOD PRESSURE [None]
  - ILL-DEFINED DISORDER [None]
  - MOVEMENT DISORDER [None]
  - DYSPNOEA [None]
  - HYPERTENSION [None]
  - OEDEMA PERIPHERAL [None]
  - DRUG INTOLERANCE [None]
  - WEIGHT INCREASED [None]
  - RENAL IMPAIRMENT [None]
